FAERS Safety Report 6435046-5 (Version None)
Quarter: 2009Q4

REPORT INFORMATION
  Report Type: 
  Country: None (occurrence: None)
  Receive Date: 20091110
  Receipt Date: 20091106
  Transmission Date: 20100525
  Serious: Yes (Death)
  Sender: FDA-Public Use
  Company Number: PHHO2009FR13798

PATIENT
  Sex: Male

DRUGS (1)
  1. RAD 666 RAD+TAB [Suspect]
     Indication: SKIN CANCER
     Dosage: UNK
     Route: 048
     Dates: start: 20090423

REACTIONS (2)
  - MULTI-ORGAN FAILURE [None]
  - SHOCK [None]
